FAERS Safety Report 17326443 (Version 1)
Quarter: 2020Q1

REPORT INFORMATION
  Report Type: Spontaneous
  Country: DE (occurrence: DE)
  Receive Date: 20200127
  Receipt Date: 20200127
  Transmission Date: 20200409
  Serious: Yes (Other)
  Sender: FDA-Public Use
  Company Number: DE-MYLANLABS-2020M1008262

PATIENT
  Age: 45 Year
  Sex: Female
  Weight: 80 kg

DRUGS (5)
  1. DICLOFENAC [Suspect]
     Active Substance: DICLOFENAC
     Indication: PRODUCT USED FOR UNKNOWN INDICATION
     Dosage: 20 TABLETS (MAXIMUM), UNK
     Route: 048
  2. DICLOFENAC [Suspect]
     Active Substance: DICLOFENAC
     Indication: PRODUCT USED FOR UNKNOWN INDICATION
     Dosage: 20 DOSAGE FORM(20 TABLETS (MAXIMUM), UNK)
     Route: 048
  3. PREDNISOLONE. [Suspect]
     Active Substance: PREDNISOLONE
     Indication: PRODUCT USED FOR UNKNOWN INDICATION
     Dosage: 10 DOSAGE FORM(10 TABLETS, UNK)
     Route: 048
  4. CLARITHROMYCIN BASICS [Suspect]
     Active Substance: CLARITHROMYCIN
     Indication: PRODUCT USED FOR UNKNOWN INDICATION
     Dosage: 8 DOSAGE FORM(8 TABLETS, UNK)
     Route: 048
  5. TRAMADOL + PARACETAMOL [Suspect]
     Active Substance: ACETAMINOPHEN\TRAMADOL
     Indication: PRODUCT USED FOR UNKNOWN INDICATION
     Dosage: 10 DOSAGE FORM(10 TABLETS, UNK)
     Route: 048

REACTIONS (3)
  - Suicidal ideation [Recovered/Resolved]
  - Somnolence [Recovered/Resolved]
  - Intentional self-injury [Recovered/Resolved]
